FAERS Safety Report 7438219-8 (Version None)
Quarter: 2011Q2

REPORT INFORMATION
  Report Type: 
  Country: None (occurrence: None)
  Receive Date: 20110426
  Receipt Date: 20110311
  Transmission Date: 20111010
  Serious: Yes (Other)
  Sender: FDA-Public Use
  Company Number: US-BAYER-201040876NA

PATIENT
  Age: 26 Year
  Sex: Female
  Weight: 106.58 kg

DRUGS (5)
  1. SERTRALINE HYDROCHLORIDE [Concomitant]
     Indication: DEPRESSION
     Dosage: UNK
     Dates: start: 20061101, end: 20071001
  2. ZOLOFT [Concomitant]
     Indication: DEPRESSION
  3. YAZ [Suspect]
     Dosage: UNK
     Dates: start: 20061201, end: 20080701
  4. YAZ [Suspect]
     Indication: ACNE
     Dosage: UNK
     Route: 048
     Dates: start: 20060101, end: 20090601
  5. MEPROZINE [Concomitant]
     Dosage: UNK

REACTIONS (3)
  - CHOLECYSTITIS CHRONIC [None]
  - ABDOMINAL PAIN UPPER [None]
  - GALLBLADDER CHOLESTEROLOSIS [None]
